FAERS Safety Report 6716926-X (Version None)
Quarter: 2010Q2

REPORT INFORMATION
  Report Type: 
  Country: None (occurrence: None)
  Receive Date: 20100506
  Receipt Date: 20100506
  Transmission Date: 20101027
  Serious: Yes (Hospitalization)
  Sender: FDA-Public Use
  Company Number: None

PATIENT
  Age: 19 Year
  Sex: Female
  Weight: 58.514 kg

DRUGS (1)
  1. MIRENA [Suspect]
     Dosage: 1
     Dates: start: 20080704, end: 20100505

REACTIONS (7)
  - ADNEXA UTERI PAIN [None]
  - DYSPAREUNIA [None]
  - DYSSTASIA [None]
  - LOSS OF CONSCIOUSNESS [None]
  - METRORRHAGIA [None]
  - OVARIAN CYST [None]
  - PELVIC PAIN [None]
